FAERS Safety Report 8646323 (Version 3)
Quarter: 2013Q1

REPORT INFORMATION
  Report Type: Report from Study
  Country: GB (occurrence: GB)
  Receive Date: 20120702
  Receipt Date: 20130107
  Transmission Date: 20140127
  Serious: Yes (Other)
  Sender: FDA-Public Use
  Company Number: PHFR2012GB003769

PATIENT
  Age: 41 Year
  Sex: Male
  Weight: 100.5 kg

DRUGS (1)
  1. TOBRAMYCIN [Suspect]
     Indication: CYSTIC FIBROSIS
     Dosage: 112 MG, BID
     Dates: start: 20120626, end: 20120627

REACTIONS (2)
  - Bronchospasm [Recovered/Resolved]
  - Chest discomfort [Unknown]
